FAERS Safety Report 8404282-0 (Version None)
Quarter: 2012Q2

REPORT INFORMATION
  Report Type: 
  Country: None (occurrence: None)
  Receive Date: 20120601
  Receipt Date: 20120523
  Transmission Date: 20120825
  Serious: Yes (Hospitalization)
  Sender: FDA-Public Use
  Company Number: BR-ASTRAZENECA-2012SE33553

PATIENT
  Age: 81 Year
  Sex: Female
  Weight: 56 kg

DRUGS (4)
  1. SOMALGIN CARDIO [Concomitant]
     Indication: MYOCARDIAL INFARCTION
     Route: 048
  2. CRESTOR [Suspect]
     Route: 048
     Dates: start: 20100101
  3. DIOVAN [Concomitant]
     Indication: MYOCARDIAL INFARCTION
     Route: 048
  4. OMEPRAZOLE [Suspect]
     Indication: PROPHYLAXIS
     Route: 048
     Dates: start: 20100101

REACTIONS (1)
  - CHEST PAIN [None]
